FAERS Safety Report 10444262 (Version 1)
Quarter: 2014Q3

REPORT INFORMATION
  Report Type: Spontaneous
  Country: GB (occurrence: None)
  Receive Date: 20140908
  Receipt Date: 20140908
  Transmission Date: 20150326
  Serious: Yes (Other)
  Sender: FDA-Public Use
  Company Number: 2516453

PATIENT
  Age: 10 Year
  Sex: Female

DRUGS (1)
  1. PHENYTOIN. [Suspect]
     Active Substance: PHENYTOIN
     Indication: PRODUCT USED FOR UNKNOWN INDICATION
     Dosage: NOT REPORTED, UNKNOWN, UNKNOWN  UNKNOWN THERAPY DATES

REACTIONS (5)
  - Nephritis [None]
  - Tonsillitis [None]
  - Pneumonitis [None]
  - Drug reaction with eosinophilia and systemic symptoms [None]
  - Hepatitis acute [None]
